FAERS Safety Report 6168353-4 (Version None)
Quarter: 2009Q2

REPORT INFORMATION
  Report Type: 
  Country: None (occurrence: None)
  Receive Date: 20090427
  Receipt Date: 20090415
  Transmission Date: 20091009
  Serious: Yes (Death, Life-Threatening, Hospitalization)
  Sender: FDA-Public Use
  Company Number: ZA-NOVOPROD-282037

PATIENT
  Sex: Female
  Weight: 67.6 kg

DRUGS (6)
  1. NORDITROPIN NORDIFLEX [Suspect]
     Indication: HAEMODIALYSIS
     Dosage: 1.4 MG, QD
     Route: 058
     Dates: start: 20080716, end: 20081027
  2. AUGMENTIN '125' [Concomitant]
     Dosage: 1.2 G, TID
     Route: 042
     Dates: start: 20081027
  3. TITRALAC                           /00183701/ [Concomitant]
     Dosage: 2 UNK, TID
     Route: 048
     Dates: start: 20081027
  4. CALCIDOL                           /00371903/ [Concomitant]
     Dosage: .5 MG, QD
     Route: 048
     Dates: start: 20081027
  5. THIAMINE HCL [Concomitant]
     Dosage: 100 MG OD, QD
     Route: 048
     Dates: start: 20081027
  6. PETHIDIN [Concomitant]
     Dosage: 50 MG, TID
     Route: 030
     Dates: start: 20081027

REACTIONS (1)
  - HAEMOPTYSIS [None]
